FAERS Safety Report 6885484-1 (Version None)
Quarter: 2010Q3

REPORT INFORMATION
  Report Type: 
  Country: None (occurrence: None)
  Receive Date: 20100729
  Receipt Date: 20080721
  Transmission Date: 20110219
  Serious: No
  Sender: FDA-Public Use
  Company Number: US-PFIZER INC-2008060781

PATIENT
  Sex: Female
  Weight: 57.727 kg

DRUGS (3)
  1. CELEBREX [Suspect]
     Indication: ARTHRITIS
     Route: 048
     Dates: start: 20080717
  2. ACETAMINOPHEN [Concomitant]
  3. ANTITHROMBOTIC AGENTS [Concomitant]

REACTIONS (4)
  - ARTHRALGIA [None]
  - DIZZINESS [None]
  - DRUG INEFFECTIVE [None]
  - INSOMNIA [None]
